FAERS Safety Report 9816986 (Version 1)
Quarter: 2014Q1

REPORT INFORMATION
  Report Type: Spontaneous
  Country: US (occurrence: US)
  Receive Date: 20140114
  Receipt Date: 20140114
  Transmission Date: 20141002
  Serious: Yes (Death)
  Sender: FDA-Public Use
  Company Number: US-PFIZER INC-2014008862

PATIENT
  Age: 75 Year
  Sex: Male

DRUGS (5)
  1. MORPHINE SULFATE [Suspect]
     Route: 048
  2. ACETAMINOPHEN W/CODEINE [Suspect]
     Route: 048
  3. AMITRIPTYLINE [Suspect]
     Route: 048
  4. OLANZAPINE [Suspect]
     Route: 048
  5. QUETIAPINE [Suspect]
     Route: 048

REACTIONS (1)
  - Completed suicide [Fatal]
